FAERS Safety Report 13188505 (Version 1)
Quarter: 2017Q1

REPORT INFORMATION
  Report Type: Spontaneous
  Country: US (occurrence: US)
  Receive Date: 20170203
  Receipt Date: 20170203
  Transmission Date: 20170428
  Serious: Yes (Other)
  Sender: FDA-Public Use
  Company Number: None

PATIENT
  Age: 11 Year
  Sex: Female
  Weight: 38.25 kg

DRUGS (8)
  1. RESVERATROL [Concomitant]
     Active Substance: RESVERATROL
  2. CURAMIN REGULAR AND EXTRA STRENGTH [Concomitant]
  3. HEALTHY LIGAMENTS AND TENDONS [Concomitant]
  4. IRON [Concomitant]
     Active Substance: IRON
  5. ESSENTIAL ONE MULTI-VITAMIN HEALTHY HAIR SKIN AND NAILS [Concomitant]
  6. LEVOFLOXACIN. [Suspect]
     Active Substance: LEVOFLOXACIN
     Indication: SINUSITIS
     Dosage: ?          QUANTITY:10 TABLET(S);?
     Route: 048
     Dates: start: 20140818, end: 20140822
  7. MAGNESIUM SUPPLEMENTS [Concomitant]
  8. HOLY BASIL [Concomitant]

REACTIONS (8)
  - Peripheral swelling [None]
  - Tendon disorder [None]
  - Joint swelling [None]
  - Musculoskeletal disorder [None]
  - Arthralgia [None]
  - Abasia [None]
  - Fatigue [None]
  - Tendon pain [None]

NARRATIVE: CASE EVENT DATE: 20140820
